FAERS Safety Report 8052369-7 (Version None)
Quarter: 2012Q1

REPORT INFORMATION
  Report Type: 
  Country: None (occurrence: None)
  Receive Date: 20120117
  Receipt Date: 20120117
  Transmission Date: 20120608
  Serious: No
  Sender: FDA-Public Use
  Company Number: None

PATIENT
  Age: 55 Year
  Sex: Male
  Weight: 100.68 kg

DRUGS (1)
  1. ENOXAPARIN [Suspect]
     Dosage: 40 MG EVERY DAY SQ
     Route: 058
     Dates: start: 20100804, end: 20100805

REACTIONS (2)
  - THROMBOCYTOPENIA [None]
  - PYREXIA [None]
